FAERS Safety Report 7935005-7 (Version None)
Quarter: 2011Q4

REPORT INFORMATION
  Report Type: 
  Country: None (occurrence: None)
  Receive Date: 20111122
  Receipt Date: 20111115
  Transmission Date: 20120403
  Serious: Yes (Death, Hospitalization)
  Sender: FDA-Public Use
  Company Number: GB-JNJFOC-20110402057

PATIENT
  Sex: Male

DRUGS (11)
  1. GOLIMUMAB [Suspect]
     Indication: RHEUMATOID ARTHRITIS
     Route: 058
     Dates: start: 20110211
  2. LANSOPRAZOLE [Concomitant]
     Indication: GASTROOESOPHAGEAL REFLUX DISEASE
     Route: 048
     Dates: start: 19880215, end: 20110316
  3. FERROUS SULFATE TAB [Concomitant]
     Indication: ANAEMIA
     Route: 048
     Dates: start: 20070215
  4. DIPYRIDAMOL [Concomitant]
     Route: 048
     Dates: start: 20110314, end: 20110315
  5. METHOTREXATE [Suspect]
     Indication: RHEUMATOID ARTHRITIS
     Route: 048
     Dates: start: 20090814, end: 20110221
  6. AMOXICILLIN [Concomitant]
     Route: 048
     Dates: start: 20110313, end: 20110314
  7. AUGMENTIN [Concomitant]
     Route: 042
     Dates: start: 20110312, end: 20110313
  8. GOLIMUMAB [Suspect]
     Route: 058
     Dates: start: 20100906
  9. SULFASALAZINE [Suspect]
     Indication: RHEUMATOID ARTHRITIS
     Route: 048
     Dates: start: 20080901, end: 20110221
  10. AUGMENTIN [Concomitant]
     Route: 048
     Dates: start: 20110311, end: 20110312
  11. ASPIRIN [Concomitant]
     Route: 048

REACTIONS (2)
  - CEREBRAL INFARCTION [None]
  - METASTATIC GASTRIC CANCER [None]
